FAERS Safety Report 5815356-2 (Version None)
Quarter: 2008Q3

REPORT INFORMATION
  Report Type: 
  Country: None (occurrence: None)
  Receive Date: 20080718
  Receipt Date: 20080711
  Transmission Date: 20090109
  Serious: Yes (Death)
  Sender: FDA-Public Use
  Company Number: GB-ABBOTT-08P-167-0462571-00

PATIENT
  Sex: Male

DRUGS (1)
  1. PROSTAPHLIN [Suspect]
     Indication: PROSTATE CANCER
     Dates: start: 20070101

REACTIONS (2)
  - MALAISE [None]
  - PROSTATIC SPECIFIC ANTIGEN INCREASED [None]
